FAERS Safety Report 17127582 (Version 1)
Quarter: 2019Q4

REPORT INFORMATION
  Report Type: Spontaneous
  Country: FR (occurrence: FR)
  Receive Date: 20191209
  Receipt Date: 20191209
  Transmission Date: 20200122
  Serious: Yes (Life-Threatening)
  Sender: FDA-Public Use
  Company Number: FR-ACCORD-163678

PATIENT
  Age: 89 Year
  Sex: Female
  Weight: 57 kg

DRUGS (9)
  1. ESOMEPRAZOLE/ESOMEPRAZOLE MAGNESIUM/ESOMEPRAZOLE SODIUM [Concomitant]
     Active Substance: ESOMEPRAZOLE
     Route: 048
  2. SERESTA [Concomitant]
     Active Substance: OXAZEPAM
     Dosage: SI BESOIN?STRENGTH 10 MG TABLET
     Route: 048
  3. FUROSEMIDE. [Suspect]
     Active Substance: FUROSEMIDE
     Indication: CARDIAC FAILURE
     Route: 048
     Dates: end: 20191008
  4. DOLIPRANE [Concomitant]
     Active Substance: ACETAMINOPHEN
  5. LANTUS [Concomitant]
     Active Substance: INSULIN GLARGINE
     Dosage: STRENGTH 100 UNITS / ML
     Route: 058
  6. CORDARONE [Suspect]
     Active Substance: AMIODARONE HYDROCHLORIDE
     Indication: PAROXYSMAL ARRHYTHMIA
     Dosage: 5 DAYS OUT OF 7, 200 MG, SCORED TABLET
     Route: 048
     Dates: end: 20191014
  7. COUMADIN [Concomitant]
     Active Substance: WARFARIN SODIUM
     Dosage: STRENGTH-2 MG,SCORED TABLET
     Route: 048
  8. DISCOTRINE [Concomitant]
     Active Substance: NITROGLYCERIN
     Dosage: STRENGTH- 10 MG / 24 HOURS
     Route: 062
     Dates: end: 20191008
  9. ESCITALOPRAM [Suspect]
     Active Substance: ESCITALOPRAM OXALATE
     Indication: PRODUCT USED FOR UNKNOWN INDICATION
     Route: 048
     Dates: end: 20191014

REACTIONS (3)
  - Hypokalaemia [Recovered/Resolved]
  - Electrocardiogram QT prolonged [Recovered/Resolved]
  - Torsade de pointes [Recovered/Resolved]

NARRATIVE: CASE EVENT DATE: 20191014
